FAERS Safety Report 21228389 (Version 1)
Quarter: 2022Q3

REPORT INFORMATION
  Report Type: Report from Study
  Country: ES (occurrence: ES)
  Receive Date: 20220818
  Receipt Date: 20220818
  Transmission Date: 20221027
  Serious: Yes (Death, Hospitalization)
  Sender: FDA-Public Use
  Company Number: None

PATIENT
  Age: 76 Year
  Sex: Male

DRUGS (6)
  1. OMEPRAZOLE [Interacting]
     Active Substance: OMEPRAZOLE
     Indication: Gastritis prophylaxis
     Dosage: OMEPRAZOL (2141A), UNIT DOSE :  20 MG, DURATION : 2 YEARS,  FREQUENCY TIME : 1 DAY
     Route: 065
     Dates: start: 201912, end: 20220711
  2. CLOPIDOGREL [Interacting]
     Active Substance: CLOPIDOGREL BISULFATE
     Indication: Thrombosis prophylaxis
     Dosage: CLOPIDOGREL (7300A) , UNIT DOSE : 75 MG, DURATION :  3 YEARS, FREQUENCY TIME : 1 DAY
     Route: 065
     Dates: start: 201905, end: 20220711
  3. ALLOPURINOL [Interacting]
     Active Substance: ALLOPURINOL
     Indication: Hyperuricaemia
     Dosage: ALOPURINOL (318A) ,UNIT DOSE :  300MG,  DURATION :  3 YEARS,FREQUENCY TIME : 1 DAY
     Route: 065
     Dates: start: 201903, end: 20220711
  4. WARFARIN SODIUM [Interacting]
     Active Substance: WARFARIN SODIUM
     Indication: Thrombosis prophylaxis
     Dosage: STRENGTH  : 1 MG, 500 TABLETS ,  DURATION :  3 YEARS
     Dates: start: 201903, end: 20220710
  5. ATORVASTATIN [Concomitant]
     Active Substance: ATORVASTATIN
     Indication: Dyslipidaemia
     Dosage: ATORVASTATIN (7400A), UNIT DOSE :  10MG,  DURATION :  3 YEARS,FREQUENCY TIME : 1 DAY
     Dates: start: 201903, end: 20220711
  6. RISEDRONAT SODIUM [Concomitant]
     Indication: Osteoporosis
     Dosage: RISEDRONAT SODIUM (7383SO), UNIT DOSE :  35 MG, DURATION :  2 YEARS, FREQUENCY TIME : 1 WEEKS
     Dates: start: 202007, end: 20220711

REACTIONS (2)
  - Subdural haematoma [Fatal]
  - Drug interaction [Unknown]

NARRATIVE: CASE EVENT DATE: 20220710
